FAERS Safety Report 5872831-2 (Version None)
Quarter: 2008Q3

REPORT INFORMATION
  Report Type: 
  Country: None (occurrence: None)
  Receive Date: 20080905
  Receipt Date: 20080826
  Transmission Date: 20090109
  Serious: Yes (Other)
  Sender: FDA-Public Use
  Company Number: US-PFIZER INC-2008007471

PATIENT
  Sex: Male
  Weight: 78 kg

DRUGS (4)
  1. VIAGRA [Suspect]
     Indication: ERECTILE DYSFUNCTION
     Route: 048
  2. ATENOLOL [Concomitant]
  3. LIPITOR [Concomitant]
     Indication: BLOOD CHOLESTEROL INCREASED
     Dates: start: 19980101
  4. AVAPRO [Concomitant]
     Dates: start: 20060101

REACTIONS (4)
  - ANXIETY [None]
  - BLINDNESS [None]
  - OPTIC ISCHAEMIC NEUROPATHY [None]
  - RETINAL VEIN OCCLUSION [None]
